FAERS Safety Report 25809941 (Version 2)
Quarter: 2025Q3

REPORT INFORMATION
  Report Type: Report from Study
  Country: US (occurrence: US)
  Receive Date: 20250917
  Receipt Date: 20250919
  Transmission Date: 20251020
  Serious: Yes (Hospitalization, Other)
  Sender: ABBVIE
  Company Number: US-ABBVIE-6168635

PATIENT
  Sex: Female
  Weight: 117 kg

DRUGS (1)
  1. SKYRIZI [Suspect]
     Active Substance: RISANKIZUMAB-RZAA
     Indication: Colitis ulcerative
     Route: 058
     Dates: start: 202410

REACTIONS (5)
  - Vaginal haemorrhage [Recovered/Resolved]
  - Foetal non-stress test abnormal [Recovered/Resolved]
  - Maternal exposure during pregnancy [Unknown]
  - Vulvovaginal pain [Recovered/Resolved]
  - Live birth [Unknown]

NARRATIVE: CASE EVENT DATE: 20250730
